FAERS Safety Report 4863173-2 (Version None)
Quarter: 2005Q4

REPORT INFORMATION
  Report Type: 
  Country: None (occurrence: None)
  Receive Date: 20051219
  Receipt Date: 20051208
  Transmission Date: 20060501
  Serious: No
  Sender: FDA-Public Use
  Company Number: US-2004-029797

PATIENT
  Age: 62 Year
  Sex: Female
  Weight: 65.318 kg

DRUGS (20)
  1. CLIMARA [Suspect]
     Indication: HORMONE REPLACEMENT THERAPY
     Dosage: 0.05 MG/D CONT TRANSDERMAL
     Route: 062
     Dates: start: 19971101, end: 19990831
  2. PREMPRO [Suspect]
     Indication: HORMONE REPLACEMENT THERAPY
     Dosage: 0.05 MG/2 CONT TRANSDERMAL
     Route: 062
     Dates: start: 19971101, end: 19990831
  3. PREMARIN [Suspect]
     Indication: HORMONE REPLACEMENT THERAPY
     Dosage: 0.625 MG ORAL
     Route: 048
     Dates: start: 19901126, end: 20001101
  4. PROVERA [Suspect]
     Indication: HORMONE REPLACEMENT THERAPY
     Dosage: 10 MG
     Dates: start: 19880101, end: 19911201
  5. OGEN [Suspect]
     Indication: HORMONE REPLACEMENT THERAPY
  6. ESTRADERM [Suspect]
     Indication: HORMONE REPLACEMENT THERAPY
     Dosage: 0.05 MG TRANSDERMAL
     Route: 062
     Dates: start: 19920311, end: 19930311
  7. CYCRIN [Suspect]
     Indication: HORMONE REPLACEMENT THERAPY
     Dosage: 2.5 MG
     Dates: start: 19971117, end: 19971217
  8. MEDROXYPROGESTERONE ACETATE [Suspect]
     Indication: HORMONE REPLACEMENT THERAPY
  9. ESTROGENS SOL/INJ [Suspect]
     Indication: HORMONE REPLACEMENT THERAPY
  10. PREMARIN [Suspect]
     Dosage: 2% VAGINAL
     Route: 067
     Dates: start: 19920311, end: 19970323
  11. PREDNISONE 50MG TAB [Concomitant]
  12. ACTIGALL                                (UROSDEOXYCHOLIC ACID) [Concomitant]
  13. SULINDAC [Concomitant]
  14. HYDROCHLOROTHIAZIDE [Concomitant]
  15. SULFASALAZINE [Concomitant]
  16. ARAVA [Concomitant]
  17. HUMIRA (ADALIMUMAB) [Concomitant]
  18. METHOTREXATE [Concomitant]
  19. FOSAMAX [Concomitant]
  20. ZETIA [Concomitant]

REACTIONS (14)
  - AORTIC VALVE STENOSIS [None]
  - BREAST ATROPHY [None]
  - BREAST CANCER FEMALE [None]
  - DEFORMITY [None]
  - DEPRESSION [None]
  - HEPATITIS [None]
  - HOT FLUSH [None]
  - HYPOAESTHESIA [None]
  - LOW DENSITY LIPOPROTEIN INCREASED [None]
  - METRORRHAGIA [None]
  - OESTROGEN RECEPTOR ASSAY POSITIVE [None]
  - POST PROCEDURAL COMPLICATION [None]
  - PROCEDURAL PAIN [None]
  - STRESS [None]
